FAERS Safety Report 22283891 (Version 1)
Quarter: 2023Q2

REPORT INFORMATION
  Report Type: Spontaneous
  Country: CA (occurrence: None)
  Receive Date: 20230504
  Receipt Date: 20230504
  Transmission Date: 20230721
  Serious: Yes (Other)
  Sender: FDA-Public Use
  Company Number: 2023A100109

PATIENT
  Sex: Female

DRUGS (10)
  1. ROSUVASTATIN [Suspect]
     Active Substance: ROSUVASTATIN
     Indication: Blood cholesterol increased
     Route: 058
  2. METFORMIN [Suspect]
     Active Substance: METFORMIN HYDROCHLORIDE
     Indication: Diabetes mellitus
  3. SANDOSTATIN LAR DEPOT [Suspect]
     Active Substance: OCTREOTIDE ACETATE
     Indication: Diabetes mellitus
  4. SIGNIFOR LAR [Suspect]
     Active Substance: PASIREOTIDE PAMOATE
     Indication: Diabetes mellitus
  5. SIGNIFOR LAR [Suspect]
     Active Substance: PASIREOTIDE PAMOATE
     Indication: Diabetes mellitus
  6. SIGNIFOR LAR [Suspect]
     Active Substance: PASIREOTIDE PAMOATE
     Indication: Diabetes mellitus
  7. VALSARTAN [Suspect]
     Active Substance: VALSARTAN
     Indication: Blood pressure measurement
  8. SOMAVERT [Concomitant]
     Active Substance: PEGVISOMANT
     Route: 058
  9. IRON [Concomitant]
     Active Substance: IRON
  10. DOSTINEX [Concomitant]
     Active Substance: CABERGOLINE

REACTIONS (14)
  - Anaemia [Unknown]
  - Blood glucose increased [Unknown]
  - Blood pressure increased [Unknown]
  - Concomitant disease aggravated [Unknown]
  - Cough [Unknown]
  - Diabetes mellitus [Unknown]
  - Diarrhoea [Unknown]
  - Faeces discoloured [Unknown]
  - Nasopharyngitis [Unknown]
  - Neoplasm malignant [Unknown]
  - Nocturia [Unknown]
  - Oropharyngeal pain [Unknown]
  - Sleep apnoea syndrome [Unknown]
  - Drug ineffective [Unknown]
